FAERS Safety Report 5612367-7 (Version None)
Quarter: 2008Q1

REPORT INFORMATION
  Report Type: 
  Country: None (occurrence: None)
  Receive Date: 20080204
  Receipt Date: 20080121
  Transmission Date: 20080703
  Serious: Yes (Death, Other)
  Sender: FDA-Public Use
  Company Number: IR-ROCHE-542854

PATIENT
  Age: 55 Year
  Sex: Male

DRUGS (2)
  1. CELLCEPT [Suspect]
     Route: 065
  2. SANDIMMUNE [Concomitant]
     Dosage: DRUG NAME: SANDIMON

REACTIONS (2)
  - BASAL CELL CARCINOMA [None]
  - DEATH [None]
